FAERS Safety Report 14467253 (Version 41)
Quarter: 2022Q4

REPORT INFORMATION
  Report Type: Report from Study
  Country: CA (occurrence: CA)
  Receive Date: 20180131
  Receipt Date: 20221024
  Transmission Date: 20230112
  Serious: Yes (Hospitalization, Other)
  Sender: FDA-Public Use
  Company Number: PHHY2014CA056516

PATIENT
  Sex: Female

DRUGS (11)
  1. SANDOSTATIN [Suspect]
     Active Substance: OCTREOTIDE ACETATE
     Indication: Neuroendocrine tumour
     Dosage: 150 UG, TID FOR 5 DAYS
     Route: 058
     Dates: start: 20140408, end: 201404
  2. SANDOSTATIN [Suspect]
     Active Substance: OCTREOTIDE ACETATE
     Dosage: 150 MCG/ML, TID (FOR 5 DAYS) (START DATE 08-???-2014)
     Route: 058
     Dates: start: 2014, end: 2014
  3. SANDOSTATIN [Suspect]
     Active Substance: OCTREOTIDE ACETATE
  4. SANDOSTATIN LAR DEPOT [Suspect]
     Active Substance: OCTREOTIDE ACETATE
     Indication: Neuroendocrine tumour
     Dosage: 40 MG, Q4W (EVERY 4 WEEKS)
     Route: 030
  5. SANDOSTATIN LAR DEPOT [Suspect]
     Active Substance: OCTREOTIDE ACETATE
     Dosage: 40 MG, QMO (STOP DATE 26-JAN-2016)
     Route: 030
     Dates: start: 20140410
  6. SANDOSTATIN LAR DEPOT [Suspect]
     Active Substance: OCTREOTIDE ACETATE
     Dosage: 30 MG, Q4W (EVERY 28 DAYS)
     Route: 030
     Dates: start: 20160225
  7. LANREOTIDE ACETATE [Suspect]
     Active Substance: LANREOTIDE ACETATE
     Indication: Product used for unknown indication
     Dosage: UNK
     Route: 065
     Dates: start: 20221006
  8. VARENICLINE TARTRATE [Concomitant]
     Active Substance: VARENICLINE TARTRATE
     Indication: Smoking cessation therapy
     Dosage: UNK
     Route: 065
  9. CANDESARTAN [Concomitant]
     Active Substance: CANDESARTAN
     Indication: Hypertension
     Dosage: 8 MG (FOR 14 DAYS)
     Route: 065
     Dates: start: 2019
  10. SERC [Concomitant]
     Indication: Labyrinthitis
     Dosage: UNK (FOR 7 DAYS)
     Route: 065
     Dates: start: 2019
  11. LYRICA [Concomitant]
     Active Substance: PREGABALIN
     Indication: Product used for unknown indication
     Dosage: 100 MG, TID (1 C)
     Route: 065

REACTIONS (41)
  - Colitis ulcerative [Unknown]
  - Endometriosis [Unknown]
  - Ovarian cyst [Unknown]
  - Abdominal pain [Recovered/Resolved]
  - Diarrhoea [Unknown]
  - Diarrhoea [Recovered/Resolved]
  - Bipolar disorder [Unknown]
  - Breast abscess [Recovering/Resolving]
  - Type 2 diabetes mellitus [Unknown]
  - Pyrexia [Recovered/Resolved]
  - Tremor [Unknown]
  - Palpitations [Unknown]
  - Depression [Unknown]
  - Anxiety [Unknown]
  - Pyrexia [Recovering/Resolving]
  - Vital signs measurement [Unknown]
  - Blood pressure increased [Unknown]
  - Drug hypersensitivity [Unknown]
  - Gastroenteritis [Recovering/Resolving]
  - Campylobacter infection [Unknown]
  - Nasopharyngitis [Unknown]
  - Rhinorrhoea [Unknown]
  - Cough [Unknown]
  - Panic attack [Recovered/Resolved]
  - Hypersomnia [Unknown]
  - Visual impairment [Unknown]
  - Vision blurred [Unknown]
  - Limb discomfort [Unknown]
  - Irritability [Unknown]
  - Insomnia [Recovering/Resolving]
  - Restless legs syndrome [Unknown]
  - COVID-19 [Unknown]
  - Needle issue [Unknown]
  - Vertigo positional [Unknown]
  - Injection site reaction [Recovered/Resolved]
  - Injection site swelling [Recovered/Resolved]
  - Injection site pain [Recovered/Resolved]
  - Dizziness [Unknown]
  - Fatigue [Unknown]
  - Abdominal pain [Unknown]
  - Headache [Unknown]

NARRATIVE: CASE EVENT DATE: 20140101
